FAERS Safety Report 7473016-9 (Version None)
Quarter: 2011Q3

REPORT INFORMATION
  Report Type: 
  Country: None (occurrence: None)
  Receive Date: 20110511
  Receipt Date: 20110504
  Transmission Date: 20111222
  Serious: Yes (Hospitalization)
  Sender: FDA-Public Use
  Company Number: SE-NAPPMUNDI-GBR-2011-0008152

PATIENT
  Sex: Male

DRUGS (11)
  1. BUPRENORPHINE [Suspect]
     Indication: PAIN
     Dosage: UNK
     Route: 062
     Dates: start: 20110209, end: 20110218
  2. ACETAMINOPHEN [Concomitant]
  3. ZOLPIDEM TARTRATE [Concomitant]
  4. SELOKENZOC [Concomitant]
  5. BEHEPAN [Concomitant]
  6. DIGOXIN [Concomitant]
  7. CITALOPRAM HYDROBROMIDE [Concomitant]
  8. IMPUGAN [Concomitant]
  9. WARAN [Concomitant]
  10. LAKTULOS [Concomitant]
  11. OMEPRAZOLE [Concomitant]

REACTIONS (1)
  - LOSS OF CONSCIOUSNESS [None]
